FAERS Safety Report 14780173 (Version 1)
Quarter: 2018Q2

REPORT INFORMATION
  Report Type: Report from Study
  Country: US (occurrence: US)
  Receive Date: 20180419
  Receipt Date: 20180419
  Transmission Date: 20180711
  Serious: Yes (Death)
  Sender: FDA-Public Use
  Company Number: US-ELI_LILLY_AND_COMPANY-US201804008651

PATIENT
  Age: 60 Year
  Sex: Male

DRUGS (3)
  1. CISPLATIN. [Concomitant]
     Active Substance: CISPLATIN
     Indication: DUCTAL ADENOCARCINOMA OF PANCREAS
     Dosage: 25 MG/M2, CYCLICAL
     Route: 042
  2. VELIPARIB [Concomitant]
     Active Substance: VELIPARIB
     Indication: DUCTAL ADENOCARCINOMA OF PANCREAS
     Dosage: UNK, BID
     Route: 048
  3. GEMCITABINE HYDROCHLORIDE. [Suspect]
     Active Substance: GEMCITABINE HYDROCHLORIDE
     Indication: DUCTAL ADENOCARCINOMA OF PANCREAS
     Dosage: 600 MG/M2, CYCLICAL
     Route: 042

REACTIONS (1)
  - Acute myeloid leukaemia [Fatal]
